FAERS Safety Report 8800040 (Version 3)
Quarter: 2013Q4

REPORT INFORMATION
  Report Type: Spontaneous
  Country: US (occurrence: US)
  Receive Date: 20120921
  Receipt Date: 20131125
  Transmission Date: 20140711
  Serious: Yes (Hospitalization, Other)
  Sender: FDA-Public Use
  Company Number: US-009507513-1209USA007477

PATIENT
  Sex: Female

DRUGS (2)
  1. SINGULAIR [Suspect]
     Indication: ASTHMA
     Dosage: 10 MG, QD
     Route: 048
     Dates: start: 2005, end: 20120906
  2. SINGULAIR [Suspect]
     Indication: HYPERSENSITIVITY

REACTIONS (2)
  - Bipolar disorder [Recovering/Resolving]
  - Overdose [Unknown]
